FAERS Safety Report 4317833-2 (Version None)
Quarter: 2004Q1

REPORT INFORMATION
  Report Type: 
  Country: None (occurrence: None)
  Receive Date: 20040316
  Receipt Date: 20040309
  Transmission Date: 20041129
  Serious: Yes (Other)
  Sender: FDA-Public Use
  Company Number: 200411815US

PATIENT
  Sex: Female

DRUGS (4)
  1. ARAVA [Suspect]
     Indication: SCLERODERMA
     Route: 048
     Dates: start: 20030301, end: 20031001
  2. PREDNISONE [Concomitant]
     Indication: SYSTEMIC LUPUS ERYTHEMATOSUS
     Route: 048
  3. PLAQUENIL [Concomitant]
  4. AMARYL [Concomitant]
     Indication: DIABETES MELLITUS

REACTIONS (4)
  - APGAR SCORE LOW [None]
  - MATERNAL DRUGS AFFECTING FOETUS [None]
  - PREMATURE BABY [None]
  - SMALL FOR DATES BABY [None]
